FAERS Safety Report 9180988 (Version 4)
Quarter: 2013Q4

REPORT INFORMATION
  Report Type: Spontaneous
  Country: US (occurrence: US)
  Receive Date: 20130322
  Receipt Date: 20131226
  Transmission Date: 20140711
  Serious: No
  Sender: FDA-Public Use
  Company Number: PHEH2012US021342

PATIENT
  Age: 52 Year
  Sex: Male

DRUGS (1)
  1. GILENYA (FINGOLIMOD) CAPSULE, 0.5MG [Suspect]
     Indication: MULTIPLE SCLEROSIS
     Dosage: 0.5 MG, QD
     Route: 048
     Dates: start: 20110316

REACTIONS (6)
  - Monoplegia [Not Recovered/Not Resolved]
  - Gait disturbance [Not Recovered/Not Resolved]
  - Balance disorder [Not Recovered/Not Resolved]
  - Condition aggravated [Unknown]
  - Delusion [Unknown]
  - Gait disturbance [None]
